FAERS Safety Report 8051987-X (Version None)
Quarter: 2012Q1

REPORT INFORMATION
  Report Type: 
  Country: None (occurrence: None)
  Receive Date: 20120118
  Receipt Date: 20120106
  Transmission Date: 20120608
  Serious: Yes (Hospitalization)
  Sender: FDA-Public Use
  Company Number: JP-ELI_LILLY_AND_COMPANY-JP201104003515

PATIENT
  Age: 75 Year
  Sex: Female

DRUGS (1)
  1. FORTEO [Suspect]
     Dosage: UNK
     Route: 058

REACTIONS (14)
  - PAIN IN EXTREMITY [None]
  - AGEUSIA [None]
  - OEDEMA [None]
  - CONSTIPATION [None]
  - STOMATITIS [None]
  - PARAESTHESIA ORAL [None]
  - WEIGHT DECREASED [None]
  - DIARRHOEA [None]
  - GASTRIC DISORDER [None]
  - COMPRESSION FRACTURE [None]
  - HYPOPHAGIA [None]
  - DYSGEUSIA [None]
  - NAUSEA [None]
  - ERYTHEMA [None]
